FAERS Safety Report 25402106 (Version 3)
Quarter: 2025Q3

REPORT INFORMATION
  Report Type: Other
  Country: US (occurrence: US)
  Receive Date: 20250605
  Receipt Date: 20250904
  Transmission Date: 20251021
  Serious: Yes (Hospitalization)
  Sender: TRAVERE THERAPEUTICS
  Company Number: US-TRAVERE-2025TVT00817

PATIENT
  Age: 56 Year
  Sex: Female
  Weight: 54 kg

DRUGS (17)
  1. FILSPARI [Suspect]
     Active Substance: SPARSENTAN
     Indication: IgA nephropathy
     Route: 048
  2. PIOGLITAZONE [Concomitant]
     Active Substance: PIOGLITAZONE
  3. INSULIN NOS [Concomitant]
     Active Substance: INSULIN NOS
  4. PLAVIX [Concomitant]
     Active Substance: CLOPIDOGREL BISULFATE
  5. LAMOTRIGINE [Concomitant]
     Active Substance: LAMOTRIGINE
  6. MIRTAZAPINE [Concomitant]
     Active Substance: MIRTAZAPINE
  7. OLANZAPINE [Concomitant]
     Active Substance: OLANZAPINE
  8. ALLOPURINOL [Concomitant]
     Active Substance: ALLOPURINOL
  9. OXYCODONE [Concomitant]
     Active Substance: OXYCODONE
  10. PREDNISONE [Concomitant]
     Active Substance: PREDNISONE
  11. VILAZODONE [Concomitant]
     Active Substance: VILAZODONE
  12. MEGESTROL [Concomitant]
     Active Substance: MEGESTROL
  13. PERINDOPRIL [Concomitant]
     Active Substance: PERINDOPRIL
  14. OMEPRAZOLE [Concomitant]
     Active Substance: OMEPRAZOLE
  15. AMLODIPINE [Concomitant]
     Active Substance: AMLODIPINE BESYLATE
  16. BUMEX [Concomitant]
     Active Substance: BUMETANIDE
  17. JARDIANCE [Concomitant]
     Active Substance: EMPAGLIFLOZIN

REACTIONS (3)
  - Hypoglycaemia [Unknown]
  - Renal failure [Unknown]
  - Pancreatitis chronic [Unknown]

NARRATIVE: CASE EVENT DATE: 20250503
